FAERS Safety Report 5346252-5 (Version None)
Quarter: 2007Q2

REPORT INFORMATION
  Report Type: 
  Country: None (occurrence: None)
  Receive Date: 20070420
  Receipt Date: 20060317
  Transmission Date: 20071010
  Serious: Yes (Hospitalization)
  Sender: FDA-Public Use
  Company Number: 06P-163-0328334-00

PATIENT
  Age: 23 Year
  Sex: Female

DRUGS (4)
  1. DEPAKOTE [Suspect]
     Indication: EPILEPSY
     Dosage: SEE IMAGE
     Route: 048
     Dates: end: 20060306
  2. DEPAKOTE [Suspect]
     Indication: EPILEPSY
     Dosage: SEE IMAGE
     Route: 048
     Dates: start: 20060101
  3. REYATAZ [Suspect]
     Indication: HIV INFECTION
  4. TRILEPTAL [Suspect]
     Indication: EPILEPSY

REACTIONS (4)
  - BILIRUBIN CONJUGATED INCREASED [None]
  - HEPATIC FUNCTION ABNORMAL [None]
  - JAUNDICE [None]
  - PRURITUS [None]
